FAERS Safety Report 11503573 (Version 2)
Quarter: 2015Q4

REPORT INFORMATION
  Report Type: Spontaneous
  Country: JP (occurrence: JP)
  Receive Date: 20150914
  Receipt Date: 20151007
  Transmission Date: 20160304
  Serious: Yes (Death, Hospitalization)
  Sender: FDA-Public Use
  Company Number: JP-MYLANLABS-2015M1030692

PATIENT

DRUGS (18)
  1. PREDNISOLONE. [Suspect]
     Active Substance: PREDNISOLONE
     Indication: ABDOMINAL PAIN
     Dosage: SALVAGE CHEMOTHERAPY EPOCH REGIMEN
     Route: 065
  2. VINCRISTINE [Suspect]
     Active Substance: VINCRISTINE
     Indication: ABDOMINAL PAIN
     Dosage: SALVAGE CHEMOTHERAPY EPOCH REGIMEN
     Route: 065
  3. DOXORUBICIN [Suspect]
     Active Substance: DOXORUBICIN
     Indication: DIFFUSE LARGE B-CELL LYMPHOMA STAGE III
     Dosage: 8 COURSES R-CHOP REGIMEN
     Route: 065
  4. DOXORUBICIN [Suspect]
     Active Substance: DOXORUBICIN
     Indication: ABDOMINAL PAIN
     Dosage: SALVAGE CHEMOTHERAPY EPOCH REGIMEN
     Route: 065
  5. DEXAMETHASONE. [Suspect]
     Active Substance: DEXAMETHASONE
     Indication: DIFFUSE LARGE B-CELL LYMPHOMA STAGE III
     Dosage: 3 COURSES SALVAGE CHEMOTHERAPY R-DHAP REGIMEN
     Route: 065
  6. MELPHALAN [Suspect]
     Active Substance: MELPHALAN
     Indication: DIFFUSE LARGE B-CELL LYMPHOMA STAGE III
     Dosage: HIGH DOSE CHEMOTHERAPY LEED REGIMEN
     Route: 065
  7. ETOPOSIDE. [Suspect]
     Active Substance: ETOPOSIDE
     Indication: ABDOMINAL PAIN
     Dosage: SALVAGE CHEMOTHERAPY EPOCH REGIMEN
     Route: 065
  8. CYCLOPHOSPHAMIDE. [Suspect]
     Active Substance: CYCLOPHOSPHAMIDE
     Indication: ABDOMINAL PAIN
     Dosage: HIGH DOSE CHEMOTHERAPY LEED REGIMEN
     Route: 065
  9. DEXAMETHASONE. [Suspect]
     Active Substance: DEXAMETHASONE
     Dosage: HIGH DOSE CHEMOTHERAPY LEED REGIMEN
     Route: 065
  10. RITUXIMAB [Suspect]
     Active Substance: RITUXIMAB
     Indication: DIFFUSE LARGE B-CELL LYMPHOMA STAGE III
     Dosage: 8 COURSES R-CHOP REGIMEN
     Route: 065
  11. RITUXIMAB [Suspect]
     Active Substance: RITUXIMAB
     Dosage: 3 COURSES SALVAGE CHEMOTHERAPY R-DHAP REGIMEN
     Route: 065
  12. CYCLOPHOSPHAMIDE. [Suspect]
     Active Substance: CYCLOPHOSPHAMIDE
     Indication: DIFFUSE LARGE B-CELL LYMPHOMA STAGE III
     Dosage: 8 COURSES R-CHOP REGIMEN
     Route: 065
  13. VINCRISTINE [Suspect]
     Active Substance: VINCRISTINE
     Indication: DIFFUSE LARGE B-CELL LYMPHOMA STAGE III
     Dosage: 8 COURSES R-CHOP REGIMEN
     Route: 065
  14. CYTARABINE. [Suspect]
     Active Substance: CYTARABINE
     Indication: DIFFUSE LARGE B-CELL LYMPHOMA STAGE III
     Dosage: HIGH DOSE; 3 COURSES SALVAGE CHEMOTHERAPY R-DHAP REGIMEN
     Route: 065
  15. CISPLATIN. [Suspect]
     Active Substance: CISPLATIN
     Indication: DIFFUSE LARGE B-CELL LYMPHOMA STAGE III
     Dosage: 3 COURSES SALVAGE CHEMOTHERAPY R-DHAP REGIMEN
     Route: 065
  16. PREDNISOLONE. [Suspect]
     Active Substance: PREDNISOLONE
     Indication: DIFFUSE LARGE B-CELL LYMPHOMA STAGE III
     Dosage: 8 COURSES R-CHOP REGIMEN
     Route: 065
  17. ETOPOSIDE. [Suspect]
     Active Substance: ETOPOSIDE
     Indication: DIFFUSE LARGE B-CELL LYMPHOMA STAGE III
     Dosage: HIGH DOSE CHEMOTHERAPY LEED REGIMEN
     Route: 065
  18. CYCLOPHOSPHAMIDE. [Suspect]
     Active Substance: CYCLOPHOSPHAMIDE
     Dosage: SALVAGE CHEMOTHERAPY EPOCH REGIMEN
     Route: 065

REACTIONS (3)
  - Varicella zoster virus infection [Fatal]
  - Multi-organ failure [Fatal]
  - Inappropriate antidiuretic hormone secretion [Recovering/Resolving]
